FAERS Safety Report 4553037-6 (Version None)
Quarter: 2005Q1

REPORT INFORMATION
  Report Type: 
  Country: None (occurrence: None)
  Receive Date: 20050114
  Receipt Date: 20050103
  Transmission Date: 20050727
  Serious: Yes (Other)
  Sender: FDA-Public Use
  Company Number: PHEH2005US00460

PATIENT
  Age: 90 Year
  Sex: Female

DRUGS (1)
  1. ZOMETA [Suspect]
     Indication: OSTEOPOROSIS
     Dosage: UNK, Q1 YEAR
     Dates: start: 20041101

REACTIONS (1)
  - BLOOD BLISTER [None]
